FAERS Safety Report 18405175 (Version 2)
Quarter: 2020Q4

REPORT INFORMATION
  Report Type: Spontaneous
  Country: US (occurrence: US)
  Receive Date: 20201020
  Receipt Date: 20201201
  Transmission Date: 20210114
  Serious: No
  Sender: FDA-Public Use
  Company Number: US-PFIZER INC-2020404267

PATIENT

DRUGS (1)
  1. ADVIL DUAL ACTION WITH ACETAMINOPHEN [Suspect]
     Active Substance: ACETAMINOPHEN\IBUPROFEN
     Indication: MIGRAINE
     Dosage: 1 DF (TAKE ONLY ONE PILL)

REACTIONS (2)
  - Intentional product misuse [Unknown]
  - Drug ineffective for unapproved indication [Unknown]
